FAERS Safety Report 13543776 (Version 1)
Quarter: 2017Q2

REPORT INFORMATION
  Report Type: Spontaneous
  Country: NO (occurrence: NO)
  Receive Date: 20170515
  Receipt Date: 20170515
  Transmission Date: 20170830
  Serious: Yes (Other)
  Sender: FDA-Public Use
  Company Number: NO-ORPHAN EUROPE-2020714

PATIENT
  Age: 12 Month
  Sex: Male

DRUGS (4)
  1. CARBAGLU [Suspect]
     Active Substance: CARGLUMIC ACID
     Indication: METHYLMALONIC ACIDURIA
     Route: 048
     Dates: start: 201511
  2. CARBAGLU [Suspect]
     Active Substance: CARGLUMIC ACID
     Route: 048
  3. CARBAGLU [Suspect]
     Active Substance: CARGLUMIC ACID
     Route: 048
  4. CARBAGLU [Suspect]
     Active Substance: CARGLUMIC ACID
     Route: 048

REACTIONS (2)
  - Diarrhoea [Recovered/Resolved]
  - Proctalgia [Unknown]

NARRATIVE: CASE EVENT DATE: 2015
